FAERS Safety Report 11970423 (Version 1)
Quarter: 2016Q1

REPORT INFORMATION
  Report Type: Report from Study
  Country: US (occurrence: US)
  Receive Date: 20160128
  Receipt Date: 20160128
  Transmission Date: 20160526
  Serious: No
  Sender: FDA-Public Use
  Company Number: US-ABBVIE-15K-163-1390717-00

PATIENT
  Age: 80 Year
  Sex: Male

DRUGS (3)
  1. HUMIRA [Suspect]
     Active Substance: ADALIMUMAB
     Dosage: SECOND DOSE
     Route: 065
     Dates: start: 20150507, end: 20150507
  2. HUMIRA [Suspect]
     Active Substance: ADALIMUMAB
     Indication: CROHN^S DISEASE
     Route: 065
     Dates: start: 20150423
  3. HUMIRA [Suspect]
     Active Substance: ADALIMUMAB
     Route: 065

REACTIONS (3)
  - Frequent bowel movements [Unknown]
  - Fatigue [Unknown]
  - Discomfort [Unknown]

NARRATIVE: CASE EVENT DATE: 20150507
